FAERS Safety Report 23556875 (Version 1)
Quarter: 2024Q1

REPORT INFORMATION
  Report Type: Spontaneous
  Country: CN (occurrence: CN)
  Receive Date: 20240223
  Receipt Date: 20240223
  Transmission Date: 20240409
  Serious: Yes (Hospitalization)
  Sender: FDA-Public Use
  Company Number: CN-Merck Healthcare KGaA-2024009232

PATIENT
  Age: 72 Year
  Sex: Female
  Weight: 67 kg

DRUGS (1)
  1. GLUCOPHAGE [Suspect]
     Active Substance: METFORMIN HYDROCHLORIDE
     Indication: Diabetes mellitus
     Route: 048
     Dates: start: 20240112, end: 20240212

REACTIONS (1)
  - Respiratory disorder [Recovering/Resolving]

NARRATIVE: CASE EVENT DATE: 20240212
